FAERS Safety Report 20692085 (Version 2)
Quarter: 2025Q4

REPORT INFORMATION
  Report Type: Report from Study
  Country: US (occurrence: US)
  Receive Date: 20220409
  Receipt Date: 20251104
  Transmission Date: 20260118
  Serious: No
  Sender: MERCK SHARP & DOHME LLC
  Company Number: US-009507513-2204USA001692

PATIENT
  Sex: Female

DRUGS (1)
  1. JANUVIA [Suspect]
     Active Substance: SITAGLIPTIN PHOSPHATE
     Dosage: TAKE ONE TABLET BY MOUTH DAILY
     Route: 048
     Dates: start: 20241122

REACTIONS (3)
  - Drug ineffective [Unknown]
  - Blood glucose increased [Unknown]
  - Product dose omission issue [Unknown]

NARRATIVE: CASE EVENT DATE: 20220101
